FAERS Safety Report 11680548 (Version 2)
Quarter: 2015Q4

REPORT INFORMATION
  Report Type: Spontaneous
  Country: US (occurrence: US)
  Receive Date: 20151027
  Receipt Date: 20151104
  Transmission Date: 20160304
  Serious: No
  Sender: FDA-Public Use
  Company Number: US-ELI_LILLY_AND_COMPANY-US201009007039

PATIENT
  Sex: Female

DRUGS (3)
  1. FORTEO [Suspect]
     Active Substance: TERIPARATIDE
     Dosage: UNK
     Dates: start: 201105
  2. FORTEO [Suspect]
     Active Substance: TERIPARATIDE
     Route: 065
  3. FORTEO [Suspect]
     Active Substance: TERIPARATIDE
     Indication: OSTEOPOROSIS
     Dosage: UNK, UNKNOWN
     Route: 065
     Dates: start: 201009

REACTIONS (22)
  - Dysphagia [Unknown]
  - Oesophageal obstruction [Unknown]
  - Diarrhoea [Unknown]
  - Intentional device misuse [Unknown]
  - Speech disorder [Unknown]
  - Muscle spasms [Unknown]
  - Hypovitaminosis [Not Recovered/Not Resolved]
  - Calcium deficiency [Unknown]
  - Foreign body [Unknown]
  - Gastroenteritis viral [Unknown]
  - Incorrect product storage [Unknown]
  - Pain in extremity [Unknown]
  - Vomiting [Unknown]
  - Constipation [Recovered/Resolved]
  - Hyperkeratosis [Unknown]
  - Feeling hot [Unknown]
  - Injection site pain [Not Recovered/Not Resolved]
  - Weight decreased [Not Recovered/Not Resolved]
  - Hypoacusis [Not Recovered/Not Resolved]
  - Foot deformity [Unknown]
  - Limb discomfort [Unknown]
  - Dizziness [Unknown]

NARRATIVE: CASE EVENT DATE: 20110210
